FAERS Safety Report 20307094 (Version 1)
Quarter: 2022Q1

REPORT INFORMATION
  Report Type: Other
  Country: HR (occurrence: None)
  Receive Date: 20220107
  Receipt Date: 20220107
  Transmission Date: 20220424
  Serious: Yes (Other)
  Sender: FDA-Public Use
  Company Number: HR-ROCHE-2994710

PATIENT

DRUGS (1)
  1. BEVACIZUMAB [Suspect]
     Active Substance: BEVACIZUMAB
     Indication: Colorectal cancer
     Route: 065

REACTIONS (1)
  - Polycythaemia [Unknown]
